FAERS Safety Report 18166020 (Version 2)
Quarter: 2020Q3

REPORT INFORMATION
  Report Type: Spontaneous
  Country: US (occurrence: US)
  Receive Date: 20200819
  Receipt Date: 20200909
  Transmission Date: 20201103
  Serious: Yes (Death, Other)
  Sender: FDA-Public Use
  Company Number: US-009507513-2008USA009120

PATIENT
  Sex: Male

DRUGS (12)
  1. NORVASC [Concomitant]
     Active Substance: AMLODIPINE BESYLATE
     Dosage: 10 MILLIGRAM, DAILY
     Route: 048
     Dates: end: 20170411
  2. JANUVIA [Suspect]
     Active Substance: SITAGLIPTIN PHOSPHATE
     Indication: TYPE 2 DIABETES MELLITUS
     Dosage: 50 MILLIGRAM, ONCE DAILY
     Route: 048
     Dates: start: 20130402, end: 2017
  3. LASIX [Concomitant]
     Active Substance: FUROSEMIDE
     Dosage: 10 MILLIGRAM, DAILY IN THE MORNING
     Route: 048
     Dates: start: 2017
  4. ACTOS [Suspect]
     Active Substance: PIOGLITAZONE HYDROCHLORIDE
     Indication: TYPE 2 DIABETES MELLITUS
     Dosage: LAST RX REFILL DATE 13?JUN?2012
     Dates: start: 20111129, end: 2012
  5. CLONAZEPAM. [Concomitant]
     Active Substance: CLONAZEPAM
     Indication: SEIZURE PROPHYLAXIS
     Dosage: UNK
     Dates: start: 20090327, end: 2017
  6. XALATAN [Concomitant]
     Active Substance: LATANOPROST
     Indication: INTRAOCULAR PRESSURE INCREASED
     Dosage: 1 GTT DROPS, NIGHT, AT BED TIME
     Dates: start: 20090417, end: 20170409
  7. OXYCODONE [Concomitant]
     Active Substance: OXYCODONE
     Indication: PAIN MANAGEMENT
     Dosage: LAST RX REFILL ON 06?JUL?2017
     Dates: start: 20070410, end: 2017
  8. METFORMIN [Suspect]
     Active Substance: METFORMIN HYDROCHLORIDE
     Indication: TYPE 2 DIABETES MELLITUS
     Dosage: UNK
     Dates: start: 20070419
  9. NORVASC [Concomitant]
     Active Substance: AMLODIPINE BESYLATE
     Dosage: 10 MILLIGRAM, DAILY
     Route: 048
     Dates: start: 2017
  10. AMARYL [Suspect]
     Active Substance: GLIMEPIRIDE
     Indication: TYPE 2 DIABETES MELLITUS
     Dosage: 4 MILLIGRAM, EVERY MORNING (1 HOUR BEFORE BREAKFAST)
     Dates: start: 20121016, end: 20170410
  11. LASIX [Concomitant]
     Active Substance: FUROSEMIDE
     Dosage: 10 MILLIGRAM, DAILY IN THE MORNING
     Route: 048
     Dates: end: 20170408
  12. ZOCOR [Concomitant]
     Active Substance: SIMVASTATIN
     Dosage: 40 MILLIGRAM, NIGHTLY, AT BEDTIME
     Route: 048

REACTIONS (13)
  - Anxiety [Unknown]
  - Fatigue [Unknown]
  - Burning sensation [Recovered/Resolved]
  - Diarrhoea [Recovered/Resolved]
  - Decreased appetite [Unknown]
  - Adenocarcinoma pancreas [Fatal]
  - Red blood cell count decreased [Unknown]
  - Limb discomfort [Unknown]
  - Dyspepsia [Unknown]
  - Vitamin D deficiency [Unknown]
  - Dermatitis [Unknown]
  - Nausea [Unknown]
  - Constipation [Unknown]

NARRATIVE: CASE EVENT DATE: 2017
